FAERS Safety Report 9838420 (Version 1)
Quarter: 2014Q1

REPORT INFORMATION
  Report Type: Report from Study
  Country: BR (occurrence: BR)
  Receive Date: 20140123
  Receipt Date: 20140123
  Transmission Date: 20141002
  Serious: Yes (Other)
  Sender: FDA-Public Use
  Company Number: BR-BAYER-2014-007035

PATIENT
  Age: 72 Year
  Sex: Male
  Weight: 67.12 kg

DRUGS (4)
  1. NEXAVAR [Suspect]
     Indication: HEPATIC CANCER
     Dosage: 2 DF, BID, 800 MG QD
     Route: 048
     Dates: start: 201304
  2. NEXAVAR [Suspect]
     Indication: HEPATIC CANCER
     Dosage: REDUCED THE DOSE
     Route: 048
  3. NEXAVAR [Suspect]
     Indication: HEPATIC CANCER
     Dosage: 800 MG, QD
     Route: 048
  4. DAONIL [Concomitant]
     Indication: DIABETES MELLITUS
     Dosage: 1 DF, QD
     Route: 048
     Dates: start: 2009

REACTIONS (8)
  - Confusional state [Not Recovered/Not Resolved]
  - Feeling cold [Recovering/Resolving]
  - Peripheral coldness [Recovering/Resolving]
  - Local swelling [Not Recovered/Not Resolved]
  - Bradyphrenia [Not Recovered/Not Resolved]
  - Dizziness [Recovering/Resolving]
  - Epistaxis [Not Recovered/Not Resolved]
  - Platelet count decreased [None]
